FAERS Safety Report 13868872 (Version 1)
Quarter: 2017Q3

REPORT INFORMATION
  Report Type: Report from Study
  Country: KR (occurrence: KR)
  Receive Date: 20170815
  Receipt Date: 20170815
  Transmission Date: 20171127
  Serious: Yes (Hospitalization)
  Sender: FDA-Public Use
  Company Number: KR-ASTRAZENECA-2017SE80708

PATIENT
  Age: 19268 Day
  Sex: Male

DRUGS (13)
  1. GLICLAZIDE [Concomitant]
     Active Substance: GLICLAZIDE
     Route: 048
     Dates: start: 20170601
  2. VYTORIN [Concomitant]
     Active Substance: EZETIMIBE\SIMVASTATIN
     Indication: HYPERKALAEMIA
     Route: 048
     Dates: start: 20170601
  3. INSULIN [Concomitant]
     Active Substance: INSULIN NOS
     Dosage: 100.0IU AS REQUIRED
     Route: 058
     Dates: start: 20170413
  4. EFONIDIPINE HYDROCHLORIDE [Concomitant]
     Active Substance: EFONIDIPINE HYDROCHLORIDE
     Indication: HYPERTENSION
     Route: 048
     Dates: start: 20170601
  5. ARONAMIN C PLUS [Concomitant]
     Route: 048
     Dates: start: 20170601
  6. STILLEN [Concomitant]
     Indication: CHRONIC GASTRITIS
     Route: 048
     Dates: start: 20170601
  7. LEVOTHYROXINE SODIUM. [Concomitant]
     Active Substance: LEVOTHYROXINE SODIUM
     Dosage: DAILY
     Route: 048
     Dates: start: 20170601
  8. DAPAGLIFLOZIN. [Suspect]
     Active Substance: DAPAGLIFLOZIN
     Indication: CHRONIC KIDNEY DISEASE
     Route: 048
     Dates: start: 20170629, end: 20170717
  9. ARB [Concomitant]
     Indication: HYPERTENSION
     Route: 048
     Dates: start: 2013
  10. CALCIUM POLYSTYRENE SULFONATE [Concomitant]
     Active Substance: CALCIUM POLYSTYRENE SULFONATE
     Indication: HYPERKALAEMIA
     Route: 048
     Dates: start: 20170601
  11. OMEGA-3-ACID ETHYL ESTERS. [Concomitant]
     Active Substance: OMEGA-3-ACID ETHYL ESTERS
     Indication: HYPERLIPIDAEMIA
     Route: 048
     Dates: start: 20170601
  12. THIOCTIC ACID [Concomitant]
     Active Substance: THIOCTIC ACID
     Indication: DIABETIC NEUROPATHY
     Route: 048
     Dates: start: 20170601
  13. LINAGLIPTIN [Concomitant]
     Active Substance: LINAGLIPTIN
     Indication: DIABETES MELLITUS
     Route: 048
     Dates: start: 20170601

REACTIONS (1)
  - Enterocolitis [Recovered/Resolved]

NARRATIVE: CASE EVENT DATE: 20170805
